FAERS Safety Report 12076766 (Version 6)
Quarter: 2016Q4

REPORT INFORMATION
  Report Type: Spontaneous
  Country: CA (occurrence: CA)
  Receive Date: 20160215
  Receipt Date: 20161018
  Transmission Date: 20170206
  Serious: Yes (Other)
  Sender: FDA-Public Use
  Company Number: CA-BEH-2015055209

PATIENT
  Age: 78 Year
  Sex: Female

DRUGS (2)
  1. PRIVIGEN [Suspect]
     Active Substance: HUMAN IMMUNOGLOBULIN G
     Indication: POST TRANSFUSION PURPURA
     Route: 065
     Dates: start: 20150923, end: 20150923
  2. CORTICOSTEROIDS [Concomitant]
     Active Substance: CORTICOSTEROID NOS
     Route: 065

REACTIONS (15)
  - Febrile nonhaemolytic transfusion reaction [Recovered/Resolved]
  - Back pain [Unknown]
  - Arthralgia [Unknown]
  - Transfusion-related circulatory overload [Recovered/Resolved]
  - Acute pulmonary oedema [Unknown]
  - Chills [Recovered/Resolved]
  - Tachypnoea [Recovered/Resolved]
  - Respiratory rate increased [Recovered/Resolved]
  - Body temperature fluctuation [Unknown]
  - Anxiety [Unknown]
  - Transfusion-associated dyspnoea [Recovered/Resolved]
  - Tremor [Unknown]
  - Oxygen saturation decreased [Recovered/Resolved]
  - Urine output increased [Unknown]
  - Hypersensitivity [Recovered/Resolved]

NARRATIVE: CASE EVENT DATE: 20150923
